FAERS Safety Report 23053354 (Version 1)
Quarter: 2023Q4

REPORT INFORMATION
  Report Type: Spontaneous
  Country: US (occurrence: None)
  Receive Date: 20231011
  Receipt Date: 20231011
  Transmission Date: 20240110
  Serious: Yes (Death, Other)
  Sender: FDA-Public Use
  Company Number: 2023A228345

PATIENT

DRUGS (13)
  1. FULVESTRANT [Suspect]
     Active Substance: FULVESTRANT
     Route: 030
     Dates: start: 20190328, end: 20210430
  2. FULVESTRANT [Suspect]
     Active Substance: FULVESTRANT
     Route: 030
     Dates: start: 20181121, end: 20190226
  3. FULVESTRANT [Suspect]
     Active Substance: FULVESTRANT
     Route: 030
     Dates: start: 20210430, end: 20210625
  4. FULVESTRANT [Suspect]
     Active Substance: FULVESTRANT
     Route: 030
     Dates: start: 20190328, end: 20210430
  5. FULVESTRANT [Suspect]
     Active Substance: FULVESTRANT
     Route: 030
     Dates: start: 20181121, end: 20190226
  6. FULVESTRANT [Suspect]
     Active Substance: FULVESTRANT
     Route: 030
     Dates: start: 20210430, end: 20210625
  7. PALBOCICLIB [Suspect]
     Active Substance: PALBOCICLIB
     Route: 048
     Dates: start: 20181221, end: 20190118
  8. PALBOCICLIB [Suspect]
     Active Substance: PALBOCICLIB
     Route: 048
     Dates: start: 20190129, end: 20190218
  9. PALBOCICLIB [Suspect]
     Active Substance: PALBOCICLIB
     Route: 048
     Dates: start: 20181121, end: 20181205
  10. ABEMACICLIB [Suspect]
     Active Substance: ABEMACICLIB
     Route: 048
     Dates: start: 20190226, end: 20210430
  11. ALPELISIB [Suspect]
     Active Substance: ALPELISIB
     Dates: start: 20210430, end: 20210625
  12. GEMCITABINE [Suspect]
     Active Substance: GEMCITABINE
     Dates: start: 20210714, end: 20211229
  13. PACLITAXEL [Suspect]
     Active Substance: PACLITAXEL
     Dates: start: 20220106, end: 20220216

REACTIONS (2)
  - Cardiac arrest [Fatal]
  - Disease progression [Fatal]

NARRATIVE: CASE EVENT DATE: 20220614
